FAERS Safety Report 6910697-X (Version None)
Quarter: 2010Q3

REPORT INFORMATION
  Report Type: 
  Country: None (occurrence: None)
  Receive Date: 20100806
  Receipt Date: 20100727
  Transmission Date: 20110219
  Serious: Yes (Other)
  Sender: FDA-Public Use
  Company Number: US-PFIZER INC-2010054654

PATIENT
  Sex: Female
  Weight: 82.993 kg

DRUGS (17)
  1. XALATAN [Suspect]
     Indication: OPEN ANGLE GLAUCOMA
     Dosage: UNK
     Dates: start: 20040901
  2. COMBIGAN [Suspect]
     Dosage: UNK
     Dates: start: 20090101
  3. TRAVATAN [Suspect]
     Dosage: UNK
     Dates: start: 20100101
  4. TIMOPTIC-XE [Suspect]
     Dosage: UNK
     Dates: start: 20100101
  5. FISH OIL [Concomitant]
     Dosage: 1000 MG, 2X/DAY
  6. MULTI-VITAMINS [Concomitant]
     Dosage: UNK
  7. OSCAL 500-D [Concomitant]
     Dosage: UNK
  8. PSYLLIUM HYDROPHILIC MUCILLOID [Concomitant]
  9. BENADRYL [Concomitant]
     Dosage: UNK
  10. CLARITIN [Concomitant]
     Dosage: UNK
  11. TRICOR [Concomitant]
     Indication: BLOOD CHOLESTEROL INCREASED
     Dosage: 145 MG, 1X/DAY
  12. TRICOR [Concomitant]
     Indication: BLOOD TRIGLYCERIDES INCREASED
  13. ZETIA [Concomitant]
     Indication: BLOOD CHOLESTEROL INCREASED
     Dosage: 10 MG, 1X/DAY
  14. ZETIA [Concomitant]
     Indication: BLOOD TRIGLYCERIDES INCREASED
  15. ACETYLSALICYLIC ACID [Concomitant]
     Indication: CARDIAC DISORDER
     Dosage: 81 MG, 1X/DAY
  16. COZAAR [Concomitant]
     Indication: HYPERTENSION
     Dosage: 100 MG, 1X/DAY
  17. MACRODANTIN [Concomitant]
     Indication: URINARY TRACT INFECTION
     Dosage: UNK

REACTIONS (10)
  - ASTHMA [None]
  - DRY SKIN [None]
  - ERYTHEMA OF EYELID [None]
  - EYE PRURITUS [None]
  - EYE SWELLING [None]
  - EYELID OEDEMA [None]
  - HYPERSENSITIVITY [None]
  - INTRAOCULAR PRESSURE INCREASED [None]
  - OCULAR HYPERAEMIA [None]
  - SKIN EXFOLIATION [None]
